FAERS Safety Report 13640777 (Version 1)
Quarter: 2017Q2

REPORT INFORMATION
  Report Type: Spontaneous
  Country: FR (occurrence: FR)
  Receive Date: 20170612
  Receipt Date: 20170612
  Transmission Date: 20170830
  Serious: Yes (Death, Other)
  Sender: FDA-Public Use
  Company Number: FR-ROCHE-1945536

PATIENT
  Age: 43 Year
  Sex: Female

DRUGS (5)
  1. GANCICLOVIR. [Concomitant]
     Active Substance: GANCICLOVIR
     Indication: ANTIVIRAL PROPHYLAXIS
     Route: 065
  2. MYCOPHENOLATE MOFETIL. [Suspect]
     Active Substance: MYCOPHENOLATE MOFETIL
     Indication: PROPHYLAXIS AGAINST TRANSPLANT REJECTION
     Route: 065
  3. PREDNISOLONE. [Suspect]
     Active Substance: PREDNISOLONE
     Indication: PROPHYLAXIS AGAINST TRANSPLANT REJECTION
     Route: 065
  4. CEFAMANDOLE [Concomitant]
     Active Substance: CEFAMANDOLE
     Indication: ANTIBIOTIC PROPHYLAXIS
  5. TACROLIMUS. [Suspect]
     Active Substance: TACROLIMUS
     Indication: PROPHYLAXIS AGAINST TRANSPLANT REJECTION
     Route: 065

REACTIONS (11)
  - Bronchopulmonary aspergillosis [Fatal]
  - Pneumonia pseudomonal [Unknown]
  - Circulatory collapse [Unknown]
  - Multiple organ dysfunction syndrome [Unknown]
  - Acute respiratory distress syndrome [Unknown]
  - Cardio-respiratory arrest [Fatal]
  - Haemoptysis [Fatal]
  - Vascular pseudoaneurysm [Unknown]
  - Respiratory tract infection fungal [Unknown]
  - Pneumonia klebsiella [Unknown]
  - Renal failure [Unknown]
